FAERS Safety Report 20418508 (Version 1)
Quarter: 2022Q1

REPORT INFORMATION
  Report Type: Spontaneous
  Country: MK (occurrence: MK)
  Receive Date: 20220202
  Receipt Date: 20220202
  Transmission Date: 20220423
  Serious: Yes (Death)
  Sender: FDA-Public Use
  Company Number: MK-PFIZER INC-202200129456

PATIENT
  Sex: Female

DRUGS (1)
  1. TAFAMIDIS MEGLUMINE [Suspect]
     Active Substance: TAFAMIDIS MEGLUMINE
     Indication: Hereditary neuropathic amyloidosis
     Dosage: UNK
     Dates: start: 201809

REACTIONS (1)
  - Death [Fatal]

NARRATIVE: CASE EVENT DATE: 20191001
